FAERS Safety Report 7403792-2 (Version None)
Quarter: 2011Q2

REPORT INFORMATION
  Report Type: 
  Country: None (occurrence: None)
  Receive Date: 20110408
  Receipt Date: 20110404
  Transmission Date: 20111010
  Serious: Yes (Hospitalization)
  Sender: FDA-Public Use
  Company Number: NO-PFIZER INC-2011073681

PATIENT
  Age: 16 Year
  Sex: Female

DRUGS (13)
  1. DIAZEPAM [Concomitant]
     Dosage: 25 MG, UNK
     Route: 048
  2. REMIFENTANIL [Suspect]
     Dosage: UNK
  3. PERFALGAN [Concomitant]
     Dosage: 1 G, UNK
  4. KETORAX [Concomitant]
     Dosage: 5 MG, UNK
     Route: 048
  5. FORTECORTIN [Concomitant]
     Dosage: 8 MG, 1X/DAY
     Route: 048
  6. MIDAZOLAM [Concomitant]
     Dosage: 5 MG, UNK
     Route: 048
  7. DYNASTAT [Concomitant]
     Dosage: 40 MG, 1X/DAY
     Route: 048
  8. THIOPENTAL SODIUM [Concomitant]
     Dosage: 490 MG, UNK
     Route: 048
  9. ONDANSETRON HCL [Suspect]
     Dosage: UNK
     Dates: start: 20110310, end: 20110310
  10. PROPOFOL [Suspect]
     Dosage: UNK
  11. MORFIN [Concomitant]
     Dosage: 5 MG, UNK
     Route: 048
  12. MARCAINE [Concomitant]
     Dosage: UNK
     Route: 048
  13. AKINETON [Concomitant]
     Dosage: 2 MG, UNK
     Route: 048

REACTIONS (1)
  - DYSTONIA [None]
